FAERS Safety Report 5690317-5 (Version None)
Quarter: 2008Q1

REPORT INFORMATION
  Report Type: 
  Country: None (occurrence: None)
  Receive Date: 20080331
  Receipt Date: 20080331
  Transmission Date: 20080703
  Serious: Yes (Other)
  Sender: FDA-Public Use
  Company Number: None

PATIENT
  Age: 23 Year
  Sex: Female
  Weight: 81.2 kg

DRUGS (2)
  1. EFAVIRENZ 600 MG BRISTOL MYER SQUIBB [Suspect]
     Indication: DRUG LEVEL
     Dosage: 600MG ONCE DAILY PO
     Route: 048
     Dates: start: 20080225, end: 20080311
  2. LEVONOGESTREL 0.75 MG DURAMED PHARMACEUTICALS [Suspect]
     Indication: DRUG LEVEL
     Dosage: 0.75 MG ONCE DAILY PO
     Route: 048
     Dates: start: 20080311, end: 20080311

REACTIONS (5)
  - BLOOD PRESSURE SYSTOLIC DECREASED [None]
  - MALAISE [None]
  - NAUSEA [None]
  - SYNCOPE [None]
  - UNRESPONSIVE TO STIMULI [None]
